FAERS Safety Report 4826373-3 (Version None)
Quarter: 2005Q4

REPORT INFORMATION
  Report Type: 
  Country: None (occurrence: None)
  Receive Date: 20051111
  Receipt Date: 20051104
  Transmission Date: 20060501
  Serious: Yes (Hospitalization)
  Sender: FDA-Public Use
  Company Number: US-ABBOTT-05P-163-0316551-00

PATIENT
  Sex: Female
  Weight: 55.842 kg

DRUGS (1)
  1. TRICOR [Suspect]
     Indication: LIPIDS INCREASED
     Route: 048
     Dates: start: 20040101, end: 20050826

REACTIONS (7)
  - ABDOMINAL DISTENSION [None]
  - CONTUSION [None]
  - DYSPEPSIA [None]
  - DYSPNOEA [None]
  - FALL [None]
  - FLATULENCE [None]
  - RIB FRACTURE [None]
